FAERS Safety Report 23218010 (Version 3)
Quarter: 2024Q1

REPORT INFORMATION
  Report Type: Spontaneous
  Country: CA (occurrence: CA)
  Receive Date: 20231122
  Receipt Date: 20240327
  Transmission Date: 20240410
  Serious: Yes (Other)
  Sender: FDA-Public Use
  Company Number: CA-VIIV HEALTHCARE LIMITED-CA2023040386

PATIENT
  Age: 46 Year
  Sex: Male

DRUGS (6)
  1. RILPIVIRINE [Suspect]
     Active Substance: RILPIVIRINE
     Indication: HIV infection
     Dosage: UNK UNK, MO, 400MG/2ML CABOTEGRAVIR, 600MG/3ML RILPIVIRINE
     Route: 030
     Dates: start: 20220916
  2. RILPIVIRINE [Suspect]
     Active Substance: RILPIVIRINE
     Dosage: UNK UNK, MO, EVERY MONTH 400MG/2ML CABOTEGRAVIR, 600MG/3ML RILPIVIRINE
     Route: 030
     Dates: start: 20220916
  3. RILPIVIRINE [Suspect]
     Active Substance: RILPIVIRINE
     Dosage: UNK, MO, CABOTEGRAVIR 400MG/2ML RILPIVIRINE 600MG/2ML
     Route: 030
  4. CABOTEGRAVIR [Suspect]
     Active Substance: CABOTEGRAVIR
     Indication: HIV infection
     Dosage: UNK UNK, MO, 400MG/2ML CABOTEGRAVIR, 600MG/3ML RILPIVIRINE
     Route: 030
     Dates: start: 20220916
  5. CABOTEGRAVIR [Suspect]
     Active Substance: CABOTEGRAVIR
     Dosage: UNK UNK, MO, EVERY MONTH 400MG/2ML CABOTEGRAVIR, 600MG/3ML RILPIVIRINE
     Route: 030
     Dates: start: 20220916
  6. CABOTEGRAVIR [Suspect]
     Active Substance: CABOTEGRAVIR
     Dosage: UNK, MO, CABOTEGRAVIR 400MG/2ML RILPIVIRINE 600MG/2ML
     Route: 030

REACTIONS (1)
  - Metabolic surgery [Unknown]

NARRATIVE: CASE EVENT DATE: 20230309
